FAERS Safety Report 9614441 (Version 1)
Quarter: 2013Q4

REPORT INFORMATION
  Report Type: Spontaneous
  Country: US (occurrence: None)
  Receive Date: 20131009
  Receipt Date: 20131009
  Transmission Date: 20140711
  Serious: Yes (Life-Threatening)
  Sender: FDA-Public Use
  Company Number: None

PATIENT
  Age: 58 Year
  Sex: Male
  Weight: 68.6 kg

DRUGS (1)
  1. DOCETAXEL [Suspect]
     Dosage: 75 MG/M2 X 1.9 M2

REACTIONS (4)
  - Anaphylactic reaction [None]
  - Cough [None]
  - Dyspnoea [None]
  - Unresponsive to stimuli [None]
